FAERS Safety Report 11766395 (Version 1)
Quarter: 2015Q4

REPORT INFORMATION
  Report Type: Spontaneous
  Country: US (occurrence: US)
  Receive Date: 20151123
  Receipt Date: 20151123
  Transmission Date: 20160304
  Serious: No
  Sender: FDA-Public Use
  Company Number: PHEH2015US023974

PATIENT
  Age: 12 Year
  Sex: Male

DRUGS (2)
  1. FOCALIN XR [Suspect]
     Active Substance: DEXMETHYLPHENIDATE HYDROCHLORIDE
     Indication: PRODUCT USED FOR UNKNOWN INDICATION
     Dosage: 15 MG, BID (15 MG IN MORNING AND 15 MG AT LUNCH)
     Route: 065
  2. FOCALIN XR [Suspect]
     Active Substance: DEXMETHYLPHENIDATE HYDROCHLORIDE
     Dosage: 25 MG, QD (15 MG IN MORNING AND 10 MG AT LUNCH)
     Route: 065

REACTIONS (3)
  - Tremor [Unknown]
  - Malaise [Unknown]
  - Agitation [Unknown]
